FAERS Safety Report 5385008-4 (Version None)
Quarter: 2007Q3

REPORT INFORMATION
  Report Type: 
  Country: None (occurrence: None)
  Receive Date: 20070709
  Receipt Date: 20070709
  Transmission Date: 20080115
  Serious: No
  Sender: FDA-Public Use
  Company Number: None

PATIENT
  Age: 20 Year
  Sex: Female
  Weight: 63.5036 kg

DRUGS (1)
  1. TUBERSOL [Suspect]
     Indication: TUBERCULIN TEST
     Dosage: 0.1ML ONCE ID 1 DOSE
     Route: 023
     Dates: start: 20070529, end: 20070529

REACTIONS (5)
  - FEELING HOT [None]
  - FLUSHING [None]
  - HYPOAESTHESIA ORAL [None]
  - NAUSEA [None]
  - PERIPHERAL COLDNESS [None]
